FAERS Safety Report 24136289 (Version 1)
Quarter: 2024Q3

REPORT INFORMATION
  Report Type: Spontaneous
  Country: DE (occurrence: DE)
  Receive Date: 20240725
  Receipt Date: 20240725
  Transmission Date: 20241017
  Serious: Yes (Congenital Anomaly, Other)
  Sender: AUROBINDO
  Company Number: DE-LUYE-2024-LUYEAG-001598

PATIENT
  Sex: Male
  Weight: 2.6 kg

DRUGS (6)
  1. BISOPROLOL [Suspect]
     Active Substance: BISOPROLOL\BISOPROLOL FUMARATE
     Indication: Tachycardia
     Dosage: 5 MILLIGRAM, ONCE A DAY
     Route: 065
     Dates: start: 20230301, end: 20231115
  2. QUETIAPINE [Suspect]
     Active Substance: QUETIAPINE
     Indication: Sleep disorder
     Dosage: 25 MILLIGRAM, ONCE A DAY
     Route: 065
  3. LEVOTHYROXINE SODIUM [Suspect]
     Active Substance: LEVOTHYROXINE SODIUM
     Indication: Autoimmune thyroiditis
     Dosage: UNK(125 [?G/D ]/ 100-125 ?G/D ACCORDING TO TSH-VALUES)
     Route: 065
     Dates: start: 20230301, end: 20231115
  4. TRIMIPRAMINE [Suspect]
     Active Substance: TRIMIPRAMINE
     Indication: Sleep disorder
     Dosage: 25 MILLIGRAM, ONCE A DAY
     Route: 065
  5. TRIMIPRAMINE [Suspect]
     Active Substance: TRIMIPRAMINE
     Dosage: 75 MILLIGRAM, ONCE A DAY
     Route: 065
  6. OXYTOCIN [Concomitant]
     Active Substance: OXYTOCIN
     Indication: Foetal heart rate deceleration abnormality
     Dosage: UNK
     Route: 065

REACTIONS (2)
  - Hypospadias [Unknown]
  - Foetal exposure during pregnancy [Unknown]

NARRATIVE: CASE EVENT DATE: 20231101
